FAERS Safety Report 4654353-X (Version None)
Quarter: 2005Q2

REPORT INFORMATION
  Report Type: 
  Country: None (occurrence: None)
  Receive Date: 20050404
  Receipt Date: 20050221
  Transmission Date: 20051028
  Serious: No
  Sender: FDA-Public Use
  Company Number: USA040978716

PATIENT
  Age: 50 Year
  Sex: Female
  Weight: 114 kg

DRUGS (9)
  1. CYMBALTA [Suspect]
     Indication: NEUROPATHIC PAIN
     Dosage: 60 MG DAY
     Dates: start: 20040918
  2. CLONIDINE [Concomitant]
  3. TOPROL-XL [Concomitant]
  4. ALLEGRA [Concomitant]
  5. PREMARIN [Concomitant]
  6. LIPITOR [Concomitant]
  7. NAPROSYN (NAPROXEN MEPHA) [Concomitant]
  8. PREVACID [Concomitant]
  9. VITAMINS [Concomitant]

REACTIONS (3)
  - INSOMNIA [None]
  - NAUSEA [None]
  - RESPIRATORY DISORDER [None]
